FAERS Safety Report 8785723 (Version 2)
Quarter: 2013Q4

REPORT INFORMATION
  Report Type: Spontaneous
  Country: CO (occurrence: CO)
  Receive Date: 20120914
  Receipt Date: 20131105
  Transmission Date: 20140711
  Serious: Yes (Hospitalization)
  Sender: FDA-Public Use
  Company Number: CO-MERCK-1209COL002018

PATIENT
  Age: 34 Year
  Sex: Male

DRUGS (5)
  1. PEG-INTRON [Suspect]
     Indication: HEPATITIS C
     Dosage: UNK
     Dates: start: 20110907
  2. FOLIC ACID [Concomitant]
  3. CALCIUM CARBONATE [Concomitant]
  4. EPOETIN [Concomitant]
  5. INSULIN [Concomitant]

REACTIONS (3)
  - Hypertensive crisis [Recovering/Resolving]
  - Nausea [Unknown]
  - Vomiting [Unknown]
